FAERS Safety Report 9715701 (Version 2)
Quarter: 2014Q1

REPORT INFORMATION
  Report Type: Spontaneous
  Country: GB (occurrence: GB)
  Receive Date: 20131127
  Receipt Date: 20140313
  Transmission Date: 20141002
  Serious: Yes (Other)
  Sender: FDA-Public Use
  Company Number: GB-ACCORD-020426

PATIENT
  Age: 54 Year
  Sex: Male
  Weight: 75 kg

DRUGS (14)
  1. CLOPIDOGREL [Suspect]
     Indication: PRODUCT USED FOR UNKNOWN INDICATION
     Dates: start: 20131014, end: 20131206
  2. NIQUITIN [Concomitant]
     Dates: start: 20130219
  3. DIETHANOLAMINE FUSIDATE/FUSIDATE SODIUM/FUSIDIC ACID [Concomitant]
     Dates: start: 20130902, end: 20130909
  4. ATORVASTATIN [Concomitant]
     Dates: start: 20131015
  5. BETAMETHASONE [Concomitant]
     Dates: start: 20130927, end: 20131104
  6. SUDOCREM [Concomitant]
     Dates: start: 20130902, end: 20130916
  7. KETOCONAZOLE [Concomitant]
     Dates: start: 20130911, end: 20131006
  8. TERBINAFINE/TERBINAFINE HYDROCHLORIDE [Concomitant]
     Dates: start: 20130911, end: 20131006
  9. SERTRALINE [Concomitant]
     Dates: start: 20130729, end: 20131015
  10. ASPIRIN [Concomitant]
     Dates: start: 20130808, end: 20131015
  11. ERYTHROMYCIN [Concomitant]
     Dates: start: 20130902, end: 20130909
  12. CLOTRIMAZOLE [Concomitant]
     Dates: start: 20131015, end: 20131022
  13. HYDROCORTISONE [Concomitant]
     Dates: start: 20130815, end: 20130906
  14. SOTALOL [Concomitant]
     Dates: start: 20131003

REACTIONS (2)
  - Rash pruritic [Not Recovered/Not Resolved]
  - Dermatitis psoriasiform [Not Recovered/Not Resolved]
